FAERS Safety Report 7687881-3 (Version None)
Quarter: 2011Q3

REPORT INFORMATION
  Report Type: 
  Country: None (occurrence: None)
  Receive Date: 20110817
  Receipt Date: 20110815
  Transmission Date: 20111222
  Serious: No
  Sender: FDA-Public Use
  Company Number: US-ROXANE LABORATORIES, INC.-2011-RO-01149RO

PATIENT
  Sex: Female

DRUGS (2)
  1. LEVOTHYROXINE SODIUM [Concomitant]
     Indication: HYPOTHYROIDISM
  2. EXEMESTANE [Suspect]
     Indication: BREAST CANCER
     Dosage: 25 MG
     Route: 048
     Dates: start: 20110401

REACTIONS (1)
  - BLOOD GLUCOSE INCREASED [None]
